FAERS Safety Report 6172316-2 (Version None)
Quarter: 2009Q2

REPORT INFORMATION
  Report Type: 
  Country: None (occurrence: None)
  Receive Date: 20090429
  Receipt Date: 20080409
  Transmission Date: 20091009
  Serious: No
  Sender: FDA-Public Use
  Company Number: A0721868A

PATIENT
  Age: 40 Year
  Sex: Female

DRUGS (4)
  1. AMERGE [Suspect]
     Indication: MIGRAINE
     Dosage: 2.5MG AS REQUIRED
     Route: 048
     Dates: start: 20030101
  2. PATANOL [Concomitant]
  3. MULTIVITAMIN WOMEN [Concomitant]
  4. MAGNESIUM SULFATE [Concomitant]

REACTIONS (3)
  - BACK PAIN [None]
  - BLOOD URINE PRESENT [None]
  - PROTEIN URINE [None]
